FAERS Safety Report 9021930 (Version 2)
Quarter: 2013Q2

REPORT INFORMATION
  Report Type: Report from Study
  Country: US (occurrence: US)
  Receive Date: 20130118
  Receipt Date: 20130624
  Transmission Date: 20140414
  Serious: Yes (Hospitalization)
  Sender: FDA-Public Use
  Company Number: US-JNJFOC-20130105433

PATIENT
  Age: 27 Year
  Sex: Female
  Weight: 90.9 kg

DRUGS (11)
  1. APAP [Suspect]
     Route: 048
  2. APAP [Suspect]
     Indication: PRODUCT USED FOR UNKNOWN INDICATION
     Route: 048
     Dates: start: 20130105
  3. CYCLOBENZAPRINE [Concomitant]
  4. TACROLIMUS [Concomitant]
  5. FENTANYL [Concomitant]
  6. PALIPERIDONE [Concomitant]
  7. APAP/OXYCODONE [Concomitant]
  8. ZOLPIDEM [Concomitant]
  9. PREGABALIN [Concomitant]
  10. CLONAZEPAM [Concomitant]
  11. BUPROPION [Concomitant]

REACTIONS (2)
  - Intentional overdose [Recovered/Resolved]
  - Self injurious behaviour [Recovered/Resolved]
